FAERS Safety Report 11084409 (Version 1)
Quarter: 2015Q2

REPORT INFORMATION
  Report Type: Spontaneous
  Country: US (occurrence: US)
  Receive Date: 20150502
  Receipt Date: 20150502
  Transmission Date: 20150821
  Serious: Yes (Other)
  Sender: FDA-Public Use
  Company Number: US-AUROBINDO-AUR-APL-2015-03863

PATIENT
  Age: 18 Year
  Sex: Female

DRUGS (2)
  1. TOPIRAMATE 50MG FILM-COATED TABLETS [Suspect]
     Active Substance: TOPIRAMATE
     Indication: HEADACHE
     Dosage: 50 MG, UNK, AT MORNING
     Route: 065
  2. TOPIRAMATE 50MG FILM-COATED TABLETS [Suspect]
     Active Substance: TOPIRAMATE
     Dosage: 75 MG, UNK, AT NIGHT

REACTIONS (5)
  - Oligomenorrhoea [Unknown]
  - Weight decreased [Unknown]
  - Orthostatic hypotension [Unknown]
  - Eating disorder [Unknown]
  - Self-induced vomiting [Unknown]
